FAERS Safety Report 8467322 (Version 2)
Quarter: 2012Q4

REPORT INFORMATION
  Report Type: Report from Study
  Country: JP (occurrence: JP)
  Receive Date: 20120320
  Receipt Date: 20121022
  Transmission Date: 20130627
  Serious: Yes (Hospitalization, Other)
  Sender: FDA-Public Use
  Company Number: JP-GENZYME-THYM-1003169

PATIENT
  Age: 3 Year
  Sex: Male
  Weight: 11 kg

DRUGS (14)
  1. THYMOGLOBULIN [Suspect]
     Indication: BONE MARROW CONDITIONING REGIMEN
     Dosage: 14 mg, qd
     Route: 042
     Dates: start: 20100220, end: 20100223
  2. FLUDARA [Suspect]
     Indication: BONE MARROW CONDITIONING REGIMEN
     Dosage: UNK
     Route: 065
     Dates: start: 20100220, end: 20100223
  3. BUSULFAN [Concomitant]
     Indication: BONE MARROW CONDITIONING REGIMEN
     Dosage: UNK
     Route: 065
     Dates: start: 20100219, end: 20100220
  4. CYCLOPHOSPHAMIDE [Concomitant]
     Indication: BONE MARROW CONDITIONING REGIMEN
     Dosage: UNK
     Route: 065
     Dates: start: 20100222, end: 20100223
  5. METHOTREXATE [Concomitant]
     Indication: PROPHYLAXIS AGAINST GRAFT VERSUS HOST DISEASE
     Dosage: UNK
     Route: 065
     Dates: start: 20100227, end: 20100416
  6. TACROLIMUS [Concomitant]
     Indication: PROPHYLAXIS AGAINST GRAFT VERSUS HOST DISEASE
     Dosage: UNK
     Route: 065
     Dates: start: 20100225, end: 20100524
  7. PREDNISOLONE SODIUM SUCCINATE [Concomitant]
     Indication: GRAFT VERSUS HOST DISEASE
     Dosage: UNK
     Route: 065
     Dates: start: 20100325, end: 20100329
  8. MYCOPHENOLATE MOFETIL [Concomitant]
     Indication: GRAFT VERSUS HOST DISEASE
     Dosage: UNK
     Route: 065
     Dates: start: 20100410, end: 20100812
  9. MEROPENEM TRIHYDRATE [Concomitant]
     Indication: INFECTION PROPHYLAXIS
     Dosage: UNK
     Route: 065
     Dates: start: 20100219, end: 20100311
  10. ACICLOVIR [Concomitant]
     Indication: INFECTION PROPHYLAXIS
     Dosage: UNK
     Route: 065
     Dates: start: 20100423, end: 20100430
  11. FREEZE-DRIED SULFONATED HUMAN [Concomitant]
     Indication: INFECTION PROPHYLAXIS
     Dosage: UNK
     Route: 065
     Dates: start: 20100227, end: 20100415
  12. PLATELETS, HUMAN BLOOD [Concomitant]
     Indication: CHRONIC GRANULOMATOUS DISEASE
     Dosage: UNK
     Route: 065
     Dates: start: 20100304, end: 20100422
  13. HUMAN RED BLOOD CELLS [Concomitant]
     Indication: CHRONIC GRANULOMATOUS DISEASE
     Dosage: UNK
     Route: 065
     Dates: start: 20100306, end: 20100322
  14. OSELTAMIVIR PHOSPHATE [Concomitant]
     Indication: PROPHYLAXIS
     Dosage: UNK
     Route: 065
     Dates: start: 20110206, end: 20110206

REACTIONS (7)
  - Altered state of consciousness [Unknown]
  - Acute graft versus host disease in skin [Not Recovered/Not Resolved]
  - Convulsion [Recovered/Resolved]
  - Febrile neutropenia [Recovered/Resolved]
  - Sepsis [Recovered/Resolved]
  - Coagulopathy [Recovered/Resolved]
  - Pyrexia [Recovered/Resolved]
